FAERS Safety Report 16260275 (Version 1)
Quarter: 2019Q2

REPORT INFORMATION
  Report Type: Spontaneous
  Country: US (occurrence: US)
  Receive Date: 20190327
  Receipt Date: 20190327
  Transmission Date: 20190711
  Serious: No
  Sender: FDA-Public Use
  Company Number: None

PATIENT
  Age: 5 Year
  Sex: Female
  Weight: 19.5 kg

DRUGS (2)
  1. MIRALAX [Suspect]
     Active Substance: POLYETHYLENE GLYCOL 3350
     Indication: CONSTIPATION
     Route: 048
     Dates: start: 2016, end: 2018
  2. SOLARAY CHILDREN^S CHEWABLE VITAMINS [Concomitant]

REACTIONS (7)
  - Anger [None]
  - Intentional self-injury [None]
  - Mood swings [None]
  - Emotional disorder [None]
  - Selective mutism [None]
  - Irritability [None]
  - Aggression [None]

NARRATIVE: CASE EVENT DATE: 20180108
